FAERS Safety Report 7487695-3 (Version None)
Quarter: 2011Q2

REPORT INFORMATION
  Report Type: 
  Country: None (occurrence: None)
  Receive Date: 20110518
  Receipt Date: 20110413
  Transmission Date: 20111010
  Serious: Yes (Death)
  Sender: FDA-Public Use
  Company Number: JP-BAYER-200914265BYL

PATIENT
  Age: 80 Year
  Sex: Male

DRUGS (1)
  1. NEXAVAR [Suspect]
     Indication: HEPATIC NEOPLASM MALIGNANT
     Dosage: 400 MG, BID
     Route: 048
     Dates: start: 20091023, end: 20110325

REACTIONS (6)
  - GASTROINTESTINAL HAEMORRHAGE [None]
  - ANAEMIA [None]
  - RASH [None]
  - HEPATIC FAILURE [None]
  - ENCEPHALOPATHY [None]
  - DIARRHOEA [None]
